FAERS Safety Report 20506219 (Version 1)
Quarter: 2022Q1

REPORT INFORMATION
  Report Type: Other
  Country: CN (occurrence: None)
  Receive Date: 20220223
  Receipt Date: 20220223
  Transmission Date: 20220424
  Serious: Yes (Death)
  Sender: FDA-Public Use
  Company Number: CN-ROCHE-2957088

PATIENT
  Age: 50 Year
  Sex: Male
  Weight: 65 kg

DRUGS (2)
  1. TECENTRIQ [Suspect]
     Active Substance: ATEZOLIZUMAB
     Indication: Lung neoplasm malignant
     Dosage: 1200MG/20ML, INJECTION
     Route: 041
     Dates: start: 20210827
  2. TECENTRIQ [Suspect]
     Active Substance: ATEZOLIZUMAB
     Indication: Hepatic cancer

REACTIONS (6)
  - Dermatitis [Unknown]
  - Pruritus [Unknown]
  - Dry skin [Unknown]
  - Pyrexia [Recovered/Resolved]
  - Dry skin [Unknown]
  - Death [Fatal]

NARRATIVE: CASE EVENT DATE: 20220202
